FAERS Safety Report 8433489-1 (Version None)
Quarter: 2012Q2

REPORT INFORMATION
  Report Type: 
  Country: None (occurrence: None)
  Receive Date: 20120613
  Receipt Date: 20120531
  Transmission Date: 20120825
  Serious: No
  Sender: FDA-Public Use
  Company Number: US-ASTRAZENECA-2012SE15268

PATIENT
  Age: 55 Year
  Sex: Female
  Weight: 55.8 kg

DRUGS (10)
  1. LISINOPRIL [Suspect]
     Indication: HYPERTENSION
     Route: 048
  2. MEDROXY PR [Concomitant]
     Indication: MENOPAUSE
  3. PROGESTERONE [Concomitant]
     Indication: MENOPAUSE
  4. SERTRELINE [Concomitant]
  5. SEROQUEL [Suspect]
     Indication: INSOMNIA
     Route: 048
     Dates: start: 20100514
  6. VITAMIN TAB [Concomitant]
  7. ESTRADIOL [Concomitant]
  8. PROZAC [Concomitant]
  9. GEMFIBROZIL [Concomitant]
     Indication: BLOOD CHOLESTEROL ABNORMAL
  10. MIRTAZAPINE [Concomitant]

REACTIONS (9)
  - INSOMNIA [None]
  - DEPRESSION [None]
  - AGEUSIA [None]
  - HALLUCINATION, AUDITORY [None]
  - DRUG DOSE OMISSION [None]
  - ANXIETY [None]
  - OFF LABEL USE [None]
  - ANOSMIA [None]
  - MENOPAUSE [None]
